FAERS Safety Report 25947066 (Version 3)
Quarter: 2025Q4

REPORT INFORMATION
  Report Type: Spontaneous
  Country: US (occurrence: US)
  Receive Date: 20251022
  Receipt Date: 20251126
  Transmission Date: 20260117
  Serious: No
  Sender: MICRO LABS LIMITED
  Company Number: US-MICRO LABS LIMITED-ML2025-05285

PATIENT
  Age: 74 Year
  Sex: Female
  Weight: 61 kg

DRUGS (2)
  1. KETOROLAC TROMETHAMINE [Suspect]
     Active Substance: KETOROLAC TROMETHAMINE
     Indication: Cataract operation
     Dosage: TWICE THAT DAY-ONCE AFTER RETURNING HOME FROM SURGERY AND AGAIN IN THE EVENING-AND THEN CONTINUED US
     Route: 047
     Dates: start: 20251001, end: 20251001
  2. KETOROLAC TROMETHAMINE [Suspect]
     Active Substance: KETOROLAC TROMETHAMINE
     Dosage: THE PATIENT IS TAPERING THE MEDICATION FOR HER LEFT EYE: FOR THE LAST SIX DAYS, SHE HAS BEEN USING I
     Route: 047
     Dates: start: 20251002, end: 20251029

REACTIONS (8)
  - Rebound effect [Recovered/Resolved]
  - Foreign body sensation in eyes [Recovered/Resolved]
  - Vision blurred [Recovered/Resolved]
  - Eye irritation [Recovered/Resolved]
  - Eye pruritus [Recovered/Resolved]
  - Visual impairment [Recovered/Resolved]
  - Eye pain [Recovered/Resolved]
  - Product storage error [Unknown]

NARRATIVE: CASE EVENT DATE: 20250101
